FAERS Safety Report 13310425 (Version 1)
Quarter: 2017Q1

REPORT INFORMATION
  Report Type: Spontaneous
  Country: US (occurrence: US)
  Receive Date: 20170309
  Receipt Date: 20170309
  Transmission Date: 20170428
  Serious: Yes (Disabling, Other)
  Sender: FDA-Public Use
  Company Number: None

PATIENT
  Age: 66 Year
  Sex: Male
  Weight: 85.35 kg

DRUGS (12)
  1. LISINOPRIL. [Concomitant]
     Active Substance: LISINOPRIL
  2. PANTAPROZOLE [Concomitant]
     Active Substance: PANTOPRAZOLE SODIUM
  3. METROPOLD [Concomitant]
  4. MELATONIN [Concomitant]
     Active Substance: MELATONIN
  5. TRAZODONE [Concomitant]
     Active Substance: TRAZODONE HYDROCHLORIDE
  6. TEMAZAPAM [Concomitant]
     Active Substance: TEMAZEPAM
  7. APIPRAZOLE [Concomitant]
  8. DICYCLOMINE HCL [Concomitant]
     Active Substance: DICYCLOMINE HYDROCHLORIDE
  9. OLANZAPINE. [Concomitant]
     Active Substance: OLANZAPINE
  10. AMLODIPIN [Concomitant]
     Active Substance: AMLODIPINE BESYLATE
  11. LORAZEPAM, MYLAN 457 [Suspect]
     Active Substance: LORAZEPAM
     Indication: ANXIETY
     Dosage: 1/2 TAB 2X DAILY TWICE BY MOUTH
     Route: 048
     Dates: start: 20010707, end: 20161215
  12. ASPIRIN. [Concomitant]
     Active Substance: ASPIRIN

REACTIONS (1)
  - Amnesia [None]

NARRATIVE: CASE EVENT DATE: 20161111
